FAERS Safety Report 5822883-0 (Version None)
Quarter: 2008Q3

REPORT INFORMATION
  Report Type: 
  Country: None (occurrence: None)
  Receive Date: 20080724
  Receipt Date: 20080724
  Transmission Date: 20090109
  Serious: Yes (Life-Threatening, Hospitalization)
  Sender: FDA-Public Use
  Company Number: None

PATIENT
  Age: 73 Year
  Sex: Female
  Weight: 59.8748 kg

DRUGS (1)
  1. DIGITEK-MYLAN PHARM, INC. UNDER [Suspect]
     Indication: HEART RATE IRREGULAR
     Dosage: 0.125 MG 1 A DAY I ORDERED 90 DAY SUPPLY TOOK 59 DAYS - 31 PILLS LEFT

REACTIONS (2)
  - INCORRECT DOSE ADMINISTERED [None]
  - PHARMACEUTICAL PRODUCT COMPLAINT [None]
